FAERS Safety Report 18594934 (Version 5)
Quarter: 2021Q4

REPORT INFORMATION
  Report Type: Spontaneous
  Country: EG (occurrence: EG)
  Receive Date: 20201209
  Receipt Date: 20211217
  Transmission Date: 20220303
  Serious: Yes (Death, Hospitalization, Other)
  Sender: FDA-Public Use
  Company Number: EG-PFIZER INC-2020481387

PATIENT
  Age: 76 Year
  Sex: Male

DRUGS (1)
  1. INLYTA [Suspect]
     Active Substance: AXITINIB
     Indication: Gastrointestinal stromal tumour
     Dosage: 5 MG, 2X/DAY
     Route: 048
     Dates: start: 20201005, end: 20210216

REACTIONS (4)
  - Death [Fatal]
  - Haematemesis [Unknown]
  - Renal failure [Unknown]
  - Respiratory failure [Unknown]

NARRATIVE: CASE EVENT DATE: 20210303
